FAERS Safety Report 9846183 (Version 4)
Quarter: 2014Q2

REPORT INFORMATION
  Report Type: Spontaneous
  Country: FR (occurrence: FR)
  Receive Date: 20140127
  Receipt Date: 20140507
  Transmission Date: 20141212
  Serious: Yes (Hospitalization)
  Sender: FDA-Public Use
  Company Number: FR-PFIZER INC-2014019182

PATIENT
  Age: 70 Year
  Sex: Female

DRUGS (7)
  1. ADVIL [Suspect]
     Indication: FEBRILE CONVULSION
     Dosage: UNK
     Route: 048
     Dates: start: 20070223, end: 20070225
  2. ADVIL [Suspect]
     Indication: COUGH
  3. TAVANIC [Suspect]
     Indication: FEBRILE CONVULSION
     Dosage: UNK
     Route: 048
     Dates: start: 20070223, end: 20070225
  4. TAVANIC [Suspect]
     Indication: COUGH
  5. TENORMINE [Concomitant]
     Dosage: 100 MG
  6. FORTZAAR [Concomitant]
     Dosage: UNK
  7. CORVASAL [Concomitant]
     Dosage: 2 MG

REACTIONS (1)
  - Agranulocytosis [Recovered/Resolved]
